FAERS Safety Report 8360248-0 (Version None)
Quarter: 2012Q1

REPORT INFORMATION
  Report Type: 
  Country: None (occurrence: None)
  Receive Date: 20120323
  Receipt Date: 20111013
  Transmission Date: 20120608
  Serious: Yes (Hospitalization)
  Sender: FDA-Public Use
  Company Number: 163-21880-11101366

PATIENT
  Age: 66 Year
  Sex: Male
  Weight: 77.1115 kg

DRUGS (16)
  1. BENADRYL [Concomitant]
  2. NARCO (PROCET) [Concomitant]
  3. PERCOCET [Concomitant]
  4. VITAMIN B (VITAMIN B) [Concomitant]
  5. AMBIEN [Concomitant]
  6. RESTORIL [Concomitant]
  7. VITAMIN A [Concomitant]
  8. ASCORBIC ACID [Concomitant]
  9. ASPIRIN [Concomitant]
  10. VALTREX [Concomitant]
  11. DEXAMETHASONE [Concomitant]
  12. CALCIUM WITH D (OS-CAL) [Concomitant]
  13. LUNESTA [Concomitant]
  14. REVLIMID [Suspect]
     Indication: MULTIPLE MYELOMA
     Dosage: 15 MG, 1 IN 1 D, PO
     Route: 048
     Dates: start: 20110720
  15. FLOMAX [Concomitant]
  16. XANAX [Concomitant]

REACTIONS (4)
  - BLOOD URIC ACID DECREASED [None]
  - WEIGHT DECREASED [None]
  - BODY TEMPERATURE INCREASED [None]
  - HAEMOGLOBIN DECREASED [None]
